FAERS Safety Report 7305294-0 (Version None)
Quarter: 2011Q1

REPORT INFORMATION
  Report Type: 
  Country: None (occurrence: None)
  Receive Date: 20110222
  Receipt Date: 20110215
  Transmission Date: 20110831
  Serious: Yes (Disabling, Other)
  Sender: FDA-Public Use
  Company Number: US-PFIZER INC-2011033643

PATIENT
  Age: 19 Year
  Sex: Female

DRUGS (3)
  1. ZONEGRAN [Concomitant]
     Indication: EPILEPSY
     Dosage: 400 MG, UNK
  2. XANAX [Concomitant]
     Dosage: UNK
     Route: 048
  3. DEPO-PROVERA [Suspect]
     Dosage: UNK
     Route: 030
     Dates: end: 20100901

REACTIONS (8)
  - PARALYSIS [None]
  - WEIGHT INCREASED [None]
  - BREAST ENLARGEMENT [None]
  - HYPERSOMNIA [None]
  - DEPRESSION [None]
  - OVARIAN DISORDER [None]
  - CONVULSION [None]
  - SKIN STRIAE [None]
